FAERS Safety Report 6225738-5 (Version None)
Quarter: 2009Q2

REPORT INFORMATION
  Report Type: 
  Country: None (occurrence: None)
  Receive Date: 20090612
  Receipt Date: 20090512
  Transmission Date: 20091009
  Serious: No
  Sender: FDA-Public Use
  Company Number: US-ABBOTT-09P-163-0571187-00

PATIENT
  Sex: Female
  Weight: 48.124 kg

DRUGS (3)
  1. HUMIRA [Suspect]
     Indication: CROHN'S DISEASE
     Dosage: DAY 1
     Dates: start: 20090427
  2. HUMIRA [Suspect]
  3. ON A NUMBER OF MEDS OF WHICH SHE HAS BEEN ON FOR SEVERAL YEARS [Concomitant]
     Indication: DRUG USE FOR UNKNOWN INDICATION

REACTIONS (4)
  - BODY TEMPERATURE FLUCTUATION [None]
  - NAUSEA [None]
  - RASH [None]
  - VOMITING [None]
